FAERS Safety Report 6277985-4 (Version None)
Quarter: 2009Q3

REPORT INFORMATION
  Report Type: 
  Country: None (occurrence: None)
  Receive Date: 20090722
  Receipt Date: 20090719
  Transmission Date: 20100115
  Serious: Yes (Hospitalization, Other)
  Sender: FDA-Public Use
  Company Number: US-BRISTOL-MYERS SQUIBB COMPANY-14555874

PATIENT
  Age: 61 Year
  Sex: Male
  Weight: 63 kg

DRUGS (3)
  1. ERBITUX [Suspect]
     Indication: OESOPHAGEAL SQUAMOUS CELL CARCINOMA
     Dosage: INFUSION DISCONTINUED AFTER 24.4 ML
     Dates: start: 20090317, end: 20090317
  2. CISPLATIN [Suspect]
     Indication: OESOPHAGEAL SQUAMOUS CELL CARCINOMA
     Dosage: ALSO TAKEN ON 24MAR09
     Dates: start: 20090318, end: 20090318
  3. TAXOL [Suspect]
     Indication: OESOPHAGEAL SQUAMOUS CELL CARCINOMA
     Dosage: ALSO TAKEN ON 24MAR09
     Dates: start: 20090318, end: 20090318

REACTIONS (3)
  - CHEST PAIN [None]
  - HYPERSENSITIVITY [None]
  - HYPOPHOSPHATAEMIA [None]
